FAERS Safety Report 4285546-1 (Version None)
Quarter: 2004Q1

REPORT INFORMATION
  Report Type: 
  Country: None (occurrence: None)
  Receive Date: 20040204
  Receipt Date: 20031106
  Transmission Date: 20041129
  Serious: Yes (Hospitalization)
  Sender: FDA-Public Use
  Company Number: 03-09-1091

PATIENT
  Age: 59 Year
  Sex: Female

DRUGS (3)
  1. METFORMIN HCL [Suspect]
     Indication: DIABETES MELLITUS INSULIN-DEPENDENT
     Dosage: 500MG TID ORAL
     Route: 048
  2. ORLISTAT CAPSULES [Suspect]
     Dosage: 120 MG TID ORAL
     Route: 048
  3. CIMETIDINE [Suspect]
     Indication: ABDOMINAL PAIN
     Dosage: 400MG BID ORAL
     Route: 048

REACTIONS (11)
  - ABDOMINAL PAIN [None]
  - ACUTE PRERENAL FAILURE [None]
  - CIRCULATORY COLLAPSE [None]
  - DEPRESSED LEVEL OF CONSCIOUSNESS [None]
  - DIARRHOEA [None]
  - DIZZINESS [None]
  - DUODENAL ULCER [None]
  - DYSARTHRIA [None]
  - LACTIC ACIDOSIS [None]
  - METABOLIC ACIDOSIS [None]
  - VISION BLURRED [None]
